FAERS Safety Report 6350800-6 (Version None)
Quarter: 2009Q3

REPORT INFORMATION
  Report Type: 
  Country: None (occurrence: None)
  Receive Date: 20090912
  Receipt Date: 20090622
  Transmission Date: 20100115
  Serious: No
  Sender: FDA-Public Use
  Company Number: US-ABBOTT-07P-163-0370915-00

PATIENT
  Sex: Female
  Weight: 69.008 kg

DRUGS (7)
  1. HUMIRA [Suspect]
     Indication: RHEUMATOID ARTHRITIS
     Route: 058
     Dates: start: 20070604
  2. METHOTREXATE [Concomitant]
     Indication: RHEUMATOID ARTHRITIS
     Route: 048
  3. LEVOTHYROXINE SODIUM [Concomitant]
     Indication: HYPOTHYROIDISM
     Route: 048
  4. LIOTHYRONINE SODIUM [Concomitant]
     Indication: HYPOTHYROIDISM
     Route: 048
  5. OXYCET [Concomitant]
     Indication: RHEUMATOID ARTHRITIS
     Dosage: 5/325 MILLIGRAMS
     Route: 048
  6. OBETROL [Concomitant]
     Indication: VISION BLURRED
     Route: 048
  7. MELOXICAM [Concomitant]
     Indication: INFLAMMATION
     Route: 048

REACTIONS (1)
  - INCORRECT DOSE ADMINISTERED [None]
